FAERS Safety Report 7520925-8 (Version None)
Quarter: 2011Q2

REPORT INFORMATION
  Report Type: 
  Country: None (occurrence: None)
  Receive Date: 20110603
  Receipt Date: 20101129
  Transmission Date: 20111010
  Serious: Yes (Death)
  Sender: FDA-Public Use
  Company Number: JP-BAYER-201013393BYL

PATIENT
  Age: 79 Year
  Sex: Male

DRUGS (1)
  1. NEXAVAR [Suspect]
     Indication: HEPATIC NEOPLASM MALIGNANT
     Dosage: 200 MG, BID
     Route: 048
     Dates: start: 20100618, end: 20101001

REACTIONS (3)
  - PLATELET COUNT DECREASED [None]
  - EMPHYSEMA [None]
  - RASH [None]
